FAERS Safety Report 26141890 (Version 2)
Quarter: 2025Q4

REPORT INFORMATION
  Report Type: Spontaneous
  Country: US (occurrence: US)
  Receive Date: 20251210
  Receipt Date: 20251222
  Transmission Date: 20260117
  Serious: Yes (Hospitalization, Other)
  Sender: PFIZER
  Company Number: US-MLMSERVICE-20251128-PI730760-00152-1

PATIENT
  Age: 63 Year
  Sex: Male

DRUGS (4)
  1. OXALIPLATIN [Suspect]
     Active Substance: OXALIPLATIN
     Indication: Adenocarcinoma gastric
     Dosage: 85 MG/M2 (FIRST BOLUS OF FOLFOX CHEMOTHERAPY; INFUSION)
  2. LEUCOVORIN [Suspect]
     Active Substance: LEUCOVORIN\LEUCOVORIN CALCIUM
     Indication: Adenocarcinoma gastric
     Dosage: 400 MG/M2 (FIRST BOLUS OF FOLFOX CHEMOTHERAPY; INFUSION)
  3. FLUOROURACIL [Suspect]
     Active Substance: FLUOROURACIL
     Indication: Adenocarcinoma gastric
     Dosage: 400 MG/M2 (FIRST BOLUS OF FOLFOX CHEMOTHERAPY; INFUSION)
  4. FLUOROURACIL [Suspect]
     Active Substance: FLUOROURACIL
     Dosage: 1200 MG/M2 (5-FU INFUSION PUMP FOR THE NEXT 48 H TO COMPLETE THE CHEMOTHERAPY CYCLE; INFUSION)

REACTIONS (1)
  - Neurotoxicity [Recovered/Resolved]
